FAERS Safety Report 21671266 (Version 1)
Quarter: 2022Q4

REPORT INFORMATION
  Report Type: Spontaneous
  Country: US (occurrence: US)
  Receive Date: 20221202
  Receipt Date: 20221202
  Transmission Date: 20230112
  Serious: No
  Sender: FDA-Public Use
  Company Number: US-GBT-017086

PATIENT
  Age: 30 Year
  Sex: Female

DRUGS (1)
  1. OXBRYTA [Suspect]
     Active Substance: VOXELOTOR
     Indication: Product used for unknown indication
     Route: 065

REACTIONS (4)
  - Sickle cell anaemia with crisis [Recovered/Resolved]
  - Product dose omission issue [Unknown]
  - Anxiety [Unknown]
  - Weight decreased [Unknown]

NARRATIVE: CASE EVENT DATE: 20220926
